FAERS Safety Report 6434226-2 (Version None)
Quarter: 2009Q4

REPORT INFORMATION
  Report Type: 
  Country: None (occurrence: None)
  Receive Date: 20091110
  Receipt Date: 20090612
  Transmission Date: 20100525
  Serious: No
  Sender: FDA-Public Use
  Company Number: US-ASTRAZENECA-2009SE10129

PATIENT
  Sex: Male

DRUGS (4)
  1. PRILOSEC OTC [Suspect]
     Indication: DYSPEPSIA
     Dosage: 1 TABLET, 1 PER DAY FOR 6 DAYS
     Route: 048
     Dates: start: 20090522, end: 20090528
  2. PRILOSEC OTC [Suspect]
     Dosage: 1 TABLET, 1 PER DAY FOR 6 DAYS
     Route: 048
     Dates: start: 20090522, end: 20090528
  3. PRILOSEC OTC [Suspect]
  4. PRILOSEC OTC [Suspect]

REACTIONS (3)
  - CONDITION AGGRAVATED [None]
  - DRUG INEFFECTIVE [None]
  - DYSPEPSIA [None]
